FAERS Safety Report 15431609 (Version 4)
Quarter: 2018Q4

REPORT INFORMATION
  Report Type: Spontaneous
  Country: US (occurrence: US)
  Receive Date: 20180926
  Receipt Date: 20181221
  Transmission Date: 20190204
  Serious: Yes (Other)
  Sender: FDA-Public Use
  Company Number: PHEH2018US039629

PATIENT
  Sex: Female

DRUGS (3)
  1. TRAVATAN Z [Suspect]
     Active Substance: TRAVOPROST
     Indication: OCULAR HYPERTENSION
  2. TRAVATAN Z [Suspect]
     Active Substance: TRAVOPROST
     Indication: INTRAOCULAR PRESSURE INCREASED
  3. TRAVATAN Z [Suspect]
     Active Substance: TRAVOPROST
     Indication: OPEN ANGLE GLAUCOMA
     Dosage: 1 GTT, QHS
     Route: 047

REACTIONS (10)
  - Foreign body sensation in eyes [Unknown]
  - Rash generalised [Unknown]
  - Choking [Unknown]
  - Eye pain [Unknown]
  - Product packaging quantity issue [Unknown]
  - Fall [Unknown]
  - Balance disorder [Unknown]
  - Hypoacusis [Unknown]
  - Deafness [Unknown]
  - Ocular discomfort [Unknown]
